FAERS Safety Report 7564215-6 (Version None)
Quarter: 2011Q2

REPORT INFORMATION
  Report Type: 
  Country: None (occurrence: None)
  Receive Date: 20110622
  Receipt Date: 20110608
  Transmission Date: 20111010
  Serious: Yes (Other)
  Sender: FDA-Public Use
  Company Number: PHFR2011GB03448

PATIENT
  Age: 68 Year
  Sex: Female

DRUGS (1)
  1. ESTRADIOL VALERATE [Suspect]
     Indication: HORMONE REPLACEMENT THERAPY
     Dosage: UNK

REACTIONS (5)
  - FALL [None]
  - MENOPAUSAL SYMPTOMS [None]
  - DEPRESSION [None]
  - HORMONE LEVEL ABNORMAL [None]
  - OSTEOARTHRITIS [None]
